FAERS Safety Report 7603630-9 (Version None)
Quarter: 2011Q3

REPORT INFORMATION
  Report Type: 
  Country: None (occurrence: None)
  Receive Date: 20110712
  Receipt Date: 20110706
  Transmission Date: 20111222
  Serious: No
  Sender: FDA-Public Use
  Company Number: US-PFIZER INC-2011151600

PATIENT
  Sex: Male
  Weight: 79 kg

DRUGS (8)
  1. RENALTABS [Concomitant]
     Dosage: UNK
  2. SUTENT [Suspect]
     Dosage: 25 MG, 1X/DAY
     Route: 048
  3. LEVOTHYROXINE [Concomitant]
     Dosage: 100 UG, UNK
  4. ACETYLSALICYLIC ACID [Concomitant]
     Dosage: 81 MG, UNK
  5. DILTIAZEM [Concomitant]
     Dosage: 120 MG, UNK (120 MG CD)
  6. TRICOR [Concomitant]
     Dosage: 145 MG, UNK
  7. SIMVASTATIN [Concomitant]
     Dosage: 10 MG, UNK
  8. ZINC [Concomitant]
     Dosage: 30 MG, UNK

REACTIONS (1)
  - DYSGEUSIA [None]
